FAERS Safety Report 9490880 (Version 1)
Quarter: 2013Q3

REPORT INFORMATION
  Report Type: Spontaneous
  Country: US (occurrence: None)
  Receive Date: 20130826
  Receipt Date: 20130826
  Transmission Date: 20140515
  Serious: Yes (Death)
  Sender: FDA-Public Use
  Company Number: KAD201308-001047

PATIENT
  Age: 41 Year
  Sex: 0

DRUGS (1)
  1. AMPHOTERICIN B [Suspect]
     Dosage: 5 MG/KG, TWICE

REACTIONS (7)
  - Wrong drug administered [None]
  - Overdose [None]
  - Renal failure [None]
  - Cardiac arrest [None]
  - Disseminated intravascular coagulation [None]
  - Hepatotoxicity [None]
  - Drug dispensing error [None]
